FAERS Safety Report 16502736 (Version 3)
Quarter: 2019Q3

REPORT INFORMATION
  Report Type: Spontaneous
  Country: DE (occurrence: DE)
  Receive Date: 20190701
  Receipt Date: 20190726
  Transmission Date: 20191004
  Serious: Yes (Disabling, Other)
  Sender: FDA-Public Use
  Company Number: DE-AMGEN-DEUSP2019103091

PATIENT
  Age: 78 Year
  Sex: Female

DRUGS (10)
  1. OMEPRAZOLE. [Concomitant]
     Active Substance: OMEPRAZOLE
  2. VALSACOR [Concomitant]
     Active Substance: VALSARTAN
  3. LYRICA [Concomitant]
     Active Substance: PREGABALIN
  4. EXFORGE [Concomitant]
     Active Substance: AMLODIPINE BESYLATE\VALSARTAN
  5. PROLIA [Suspect]
     Active Substance: DENOSUMAB
     Indication: OSTEOPOROSIS
     Dosage: 60 MILLIGRAM, Q6MO
     Route: 058
     Dates: start: 20160413, end: 20171121
  6. RISEDRONIC ACID [Concomitant]
     Active Substance: RISEDRONIC ACID
  7. PALEXIA [Concomitant]
     Active Substance: TAPENTADOL HYDROCHLORIDE
     Dosage: 50 UNK, BID
  8. NOVAMIN (AMIKACIN SULFATE) [Concomitant]
     Active Substance: AMIKACIN SULFATE
     Dosage: 500 UNK, TID
  9. METOHEXAL [Concomitant]
     Active Substance: METOPROLOL
  10. L-THYROXINE [Concomitant]
     Active Substance: LEVOTHYROXINE

REACTIONS (1)
  - Pathological fracture [Not Recovered/Not Resolved]

NARRATIVE: CASE EVENT DATE: 201811
